FAERS Safety Report 6041299-8 (Version None)
Quarter: 2009Q1

REPORT INFORMATION
  Report Type: 
  Country: None (occurrence: None)
  Receive Date: 20090116
  Receipt Date: 20080929
  Transmission Date: 20090719
  Serious: No
  Sender: FDA-Public Use
  Company Number: US-BRISTOL-MYERS SQUIBB COMPANY-14351779

PATIENT
  Age: 52 Year
  Sex: Female

DRUGS (5)
  1. ABILIFY [Suspect]
     Indication: MAJOR DEPRESSION
     Dosage: DOSE REDUCED TO 2.5 MG AND WAS POSSIBLY WITHDRAWN.
  2. FLUOXETINE [Suspect]
     Indication: MAJOR DEPRESSION
  3. LEXAPRO [Suspect]
     Indication: MAJOR DEPRESSION
  4. CYMBALTA [Suspect]
     Indication: MAJOR DEPRESSION
  5. STRATTERA [Concomitant]

REACTIONS (2)
  - GALACTORRHOEA [None]
  - HYPERPROLACTINAEMIA [None]
